FAERS Safety Report 8264250-9 (Version None)
Quarter: 2012Q2

REPORT INFORMATION
  Report Type: 
  Country: None (occurrence: None)
  Receive Date: 20120406
  Receipt Date: 20120328
  Transmission Date: 20120825
  Serious: Yes (Hospitalization)
  Sender: FDA-Public Use
  Company Number: FR-JNJFOC-20120204043

PATIENT
  Age: 60 Year
  Sex: Female
  Weight: 65 kg

DRUGS (15)
  1. REMICADE [Suspect]
     Route: 042
     Dates: start: 20110628
  2. FOLIC ACID [Concomitant]
     Route: 065
  3. OMEPRAZOLE [Concomitant]
     Route: 065
  4. REMICADE [Suspect]
     Route: 042
     Dates: start: 20110405
  5. TENORMIN [Concomitant]
     Route: 065
  6. METHOTREXATE [Suspect]
     Indication: RHEUMATOID ARTHRITIS
     Route: 065
     Dates: start: 20040101, end: 20111015
  7. PREDNISONE TAB [Concomitant]
     Route: 065
  8. DIAMICRON [Concomitant]
     Dosage: 30 LP
     Route: 065
  9. REMICADE [Suspect]
     Route: 042
     Dates: start: 20110517
  10. METFORMIN HCL [Concomitant]
     Route: 065
  11. REMICADE [Suspect]
     Indication: RHEUMATOID ARTHRITIS
     Route: 042
     Dates: start: 20110816
  12. ALLOPURINOL [Concomitant]
     Route: 065
  13. VALACYCLOVIR HYDROCHLORIDE [Concomitant]
     Dosage: 30 LP
     Route: 065
  14. REMICADE [Suspect]
     Route: 042
     Dates: start: 20040101
  15. ATORVASTATIN [Concomitant]
     Route: 065

REACTIONS (2)
  - LYMPHOID TISSUE HYPERPLASIA [None]
  - WEIGHT DECREASED [None]
